FAERS Safety Report 21673826 (Version 2)
Quarter: 2022Q4

REPORT INFORMATION
  Report Type: Spontaneous
  Country: PL (occurrence: PL)
  Receive Date: 20221202
  Receipt Date: 20221208
  Transmission Date: 20230113
  Serious: Yes (Hospitalization, Other)
  Sender: FDA-Public Use
  Company Number: PL-BoehringerIngelheim-2022-BI-202968

PATIENT
  Sex: Male

DRUGS (1)
  1. JARDIANCE [Suspect]
     Active Substance: EMPAGLIFLOZIN
     Indication: Cardiac failure
     Dosage: DRUG DISCONTINUED WITHIN 1 WEEK BEFORE ADMISSION TO THE HOSPITAL

REACTIONS (2)
  - Cardiac failure [Unknown]
  - Urinary tract infection [Recovered/Resolved]
